FAERS Safety Report 17378007 (Version 1)
Quarter: 2020Q1

REPORT INFORMATION
  Report Type: Spontaneous
  Country: PL (occurrence: PL)
  Receive Date: 20200206
  Receipt Date: 20200206
  Transmission Date: 20200409
  Serious: Yes (Other)
  Sender: FDA-Public Use
  Company Number: PHHY2019PL090539

PATIENT
  Age: 78 Year
  Sex: Male
  Weight: 87 kg

DRUGS (4)
  1. METHOTREXATE EBEWE [Suspect]
     Active Substance: METHOTREXATE
     Indication: BLADDER CANCER
     Dosage: 60 MG, UNK
     Route: 042
  2. VINBLASTINE [Suspect]
     Active Substance: VINBLASTINE
     Indication: BLADDER CANCER
     Dosage: 6 MG, UNK
     Route: 042
  3. CISPLATIN TEVA [Suspect]
     Active Substance: CISPLATIN
     Indication: BLADDER CANCER
     Dosage: 105 MG, UNK
     Route: 042
  4. DOXORUBICIN EBEWE [Suspect]
     Active Substance: DOXORUBICIN
     Indication: BLADDER CANCER
     Dosage: 60 MG, UNK
     Route: 042

REACTIONS (1)
  - Embolism [Recovering/Resolving]

NARRATIVE: CASE EVENT DATE: 20141203
